FAERS Safety Report 20847980 (Version 1)
Quarter: 2022Q2

REPORT INFORMATION
  Report Type: Spontaneous
  Country: US (occurrence: US)
  Receive Date: 20220519
  Receipt Date: 20220519
  Transmission Date: 20220721
  Serious: Yes (Hospitalization, Other)
  Sender: FDA-Public Use
  Company Number: US-Accord-263545

PATIENT
  Age: 31 Year
  Sex: Male

DRUGS (4)
  1. MYCOPHENOLATE MOFETIL [Suspect]
     Active Substance: MYCOPHENOLATE MOFETIL
     Indication: Immunosuppressant drug therapy
  2. TACROLIMUS [Suspect]
     Active Substance: TACROLIMUS
     Indication: Immunosuppressant drug therapy
  3. PREDNISONE [Suspect]
     Active Substance: PREDNISONE
     Indication: Immunosuppressant drug therapy
  4. LAMIVUDINE,DOLUTEGRAVIR, ABACAVIR [Concomitant]

REACTIONS (4)
  - Haemophagocytic lymphohistiocytosis [Unknown]
  - Peliosis hepatis [Unknown]
  - Cat scratch disease [Unknown]
  - Epstein-Barr virus infection [Unknown]
